FAERS Safety Report 9111197 (Version 1)
Quarter: 2013Q1

REPORT INFORMATION
  Report Type: Spontaneous
  Country: US (occurrence: US)
  Receive Date: 20130219
  Receipt Date: 20130219
  Transmission Date: 20140127
  Serious: No
  Sender: FDA-Public Use
  Company Number: US-BRISTOL-MYERS SQUIBB COMPANY-16378838

PATIENT
  Age: 47 Year
  Sex: Female

DRUGS (3)
  1. ORENCIA FOR INJ [Suspect]
     Dosage: FOR SEVERAL YEARS
  2. BENADRYL [Concomitant]
     Indication: PROPHYLAXIS
  3. PHENERGAN [Concomitant]
     Indication: PROPHYLAXIS
     Route: 042

REACTIONS (3)
  - Migraine [Unknown]
  - Influenza like illness [Unknown]
  - Incorrect drug administration duration [Unknown]
